FAERS Safety Report 20495017 (Version 3)
Quarter: 2022Q4

REPORT INFORMATION
  Report Type: Other
  Country: CN (occurrence: None)
  Receive Date: 20220221
  Receipt Date: 20221004
  Transmission Date: 20230113
  Serious: Yes (Other)
  Sender: FDA-Public Use
  Company Number: CN-ROCHE-3024324

PATIENT
  Age: 48 Year
  Sex: Male
  Weight: 80 kg

DRUGS (8)
  1. TECENTRIQ [Suspect]
     Active Substance: ATEZOLIZUMAB
     Indication: Hepatocellular carcinoma
     Route: 041
     Dates: start: 20210906
  2. TECENTRIQ [Suspect]
     Active Substance: ATEZOLIZUMAB
     Indication: Metastases to bone
  3. TECENTRIQ [Suspect]
     Active Substance: ATEZOLIZUMAB
     Indication: Hepatic cancer
  4. AVASTIN [Suspect]
     Active Substance: BEVACIZUMAB
     Indication: Antiangiogenic therapy
     Dosage: 100MG(4ML)/VIAL/BOX, INJECTION
     Route: 041
     Dates: start: 20210927
  5. AVASTIN [Suspect]
     Active Substance: BEVACIZUMAB
     Indication: Hepatocellular carcinoma
  6. AVASTIN [Suspect]
     Active Substance: BEVACIZUMAB
     Indication: Metastases to bone
  7. AVASTIN [Suspect]
     Active Substance: BEVACIZUMAB
     Indication: Hepatic cancer
  8. LENVATINIB MESYLATE [Concomitant]
     Active Substance: LENVATINIB MESYLATE
     Indication: Hepatic cancer
     Dosage: 4 MG 10 CAPSULES 3 PLATES
     Route: 048
     Dates: start: 20220323

REACTIONS (4)
  - Renal impairment [Recovered/Resolved]
  - Tooth loss [Recovered/Resolved with Sequelae]
  - Poor quality sleep [Not Recovered/Not Resolved]
  - Erythema [Not Recovered/Not Resolved]

NARRATIVE: CASE EVENT DATE: 20220301
